FAERS Safety Report 9983853 (Version 2)
Quarter: 2014Q1

REPORT INFORMATION
  Report Type: Spontaneous
  Country: US (occurrence: US)
  Receive Date: 20140307
  Receipt Date: 20140307
  Transmission Date: 20141002
  Serious: Yes (Other)
  Sender: FDA-Public Use
  Company Number: PHHY2013US153540

PATIENT
  Sex: Female

DRUGS (13)
  1. BACLOFEN INTRATHECAL [Suspect]
     Indication: PAIN
     Dosage: UNK UKN, UNK
     Route: 037
  2. BACLOFEN INTRATHECAL [Suspect]
     Dosage: 89.85 UG/DAY (CONCENTRATION 500 UG/ML)
     Route: 037
  3. BACLOFEN INTRATHECAL [Suspect]
     Dosage: 107.9 UG/DAY (500 UG/ML)
     Route: 037
     Dates: start: 20140106
  4. TIZANIDINE [Suspect]
     Dosage: 1 DF, Q6H (AS NEEDED)
     Route: 048
  5. DIAZEPAM [Suspect]
     Dosage: 1 DF, Q6H (AS NEEDED)
     Route: 048
  6. AMITRIPTYLINE HCL TABLETS USP [Suspect]
     Dosage: 1 DF, QHS (AT BEDTIME)
     Route: 048
  7. METOPROLOL TARTRATE SANDOZ [Suspect]
     Dosage: 1 DF, BID
     Route: 048
  8. DILAUDID [Suspect]
     Dosage: 0.1797 MG/DAY
     Route: 037
  9. DILAUDID [Suspect]
     Dosage: 0.2158 MG/DAY
     Route: 037
     Dates: start: 20140106
  10. BUPIVICAINE [Suspect]
     Dosage: 3.594 MG/DAY
     Route: 037
  11. BUPIVICAINE [Suspect]
     Dosage: 4.316 MG/DAY
     Route: 037
     Dates: start: 20140106
  12. NEURONTIN [Suspect]
     Dosage: 1 DF, TID
     Route: 048
  13. HYDROCODONE BITARTRATE AND ACETAMINOPHEN [Suspect]
     Dosage: 1 DF, Q4H (EVERY 4/4 HOURS, MAXIMUM 3DF/DAY)

REACTIONS (5)
  - Renal failure [Unknown]
  - Hypertension [Unknown]
  - Pain [Unknown]
  - Breakthrough pain [Unknown]
  - Device malfunction [None]
